FAERS Safety Report 7457477-7 (Version None)
Quarter: 2011Q2

REPORT INFORMATION
  Report Type: 
  Country: None (occurrence: None)
  Receive Date: 20110504
  Receipt Date: 20110427
  Transmission Date: 20111010
  Serious: Yes (Hospitalization, Other)
  Sender: FDA-Public Use
  Company Number: GB-ELI_LILLY_AND_COMPANY-GB201103004876

PATIENT
  Sex: Male
  Weight: 84 kg

DRUGS (7)
  1. ISOPHANE INSULIN [Concomitant]
     Indication: DIABETES MELLITUS
     Dosage: 1 D/F, UNK
  2. CELECOXIB [Concomitant]
     Dosage: 1 D/F, UNK
  3. CIALIS [Suspect]
     Indication: ERECTILE DYSFUNCTION
     Dosage: 20 MG, PRN
     Route: 048
     Dates: start: 20110312, end: 20110315
  4. RAMIPRIL [Concomitant]
     Dosage: 10 MG, QD
  5. INSULIN ASPART [Concomitant]
     Indication: DIABETES MELLITUS
     Dosage: 1 D/F, UNK
  6. SIMVASTATIN [Concomitant]
     Dosage: 40 MG, QD
  7. CARBIMAZOLE [Concomitant]
     Dosage: 25 MG, UNK

REACTIONS (1)
  - BLINDNESS UNILATERAL [None]
